FAERS Safety Report 5236756-8 (Version None)
Quarter: 2007Q1

REPORT INFORMATION
  Report Type: 
  Country: None (occurrence: None)
  Receive Date: 20061208
  Receipt Date: 20050520
  Transmission Date: 20070707
  Serious: Yes (Other)
  Sender: FDA-Public Use
  Company Number: 2005UW07842

PATIENT
  Age: 77 Year
  Sex: Female
  Weight: 68.038 kg

DRUGS (4)
  1. CRESTOR [Suspect]
     Indication: BLOOD CHOLESTEROL INCREASED
     Dosage: 5 MG TIWK PO
     Route: 048
     Dates: start: 20050513
  2. LANOXIN [Concomitant]
  3. LISINOPRIL [Concomitant]
  4. WARFARIN SODIUM [Concomitant]

REACTIONS (1)
  - CHROMATOPSIA [None]
